FAERS Safety Report 6834945-X (Version None)
Quarter: 2010Q3

REPORT INFORMATION
  Report Type: 
  Country: None (occurrence: None)
  Receive Date: 20100712
  Receipt Date: 20070502
  Transmission Date: 20110219
  Serious: Yes (Other)
  Sender: FDA-Public Use
  Company Number: US-PFIZER INC-2007029318

PATIENT
  Sex: Female
  Weight: 72.6 kg

DRUGS (5)
  1. CHANTIX [Suspect]
     Indication: SMOKING CESSATION THERAPY
     Dates: start: 20070201, end: 20070201
  2. AMBIEN [Suspect]
     Indication: INSOMNIA
     Dosage: AT BEDTIME
     Dates: start: 20070101, end: 20070101
  3. ALBUTEROL [Concomitant]
  4. SPIRIVA [Concomitant]
  5. ZYRTEC [Concomitant]

REACTIONS (6)
  - DRUG INEFFECTIVE [None]
  - DYSGEUSIA [None]
  - FATIGUE [None]
  - FEELING ABNORMAL [None]
  - INSOMNIA [None]
  - WEIGHT INCREASED [None]
